FAERS Safety Report 23210715 (Version 1)
Quarter: 2023Q4

REPORT INFORMATION
  Report Type: Spontaneous
  Country: FR (occurrence: FR)
  Receive Date: 20231121
  Receipt Date: 20231121
  Transmission Date: 20240110
  Serious: Yes (Hospitalization, Disabling)
  Sender: FDA-Public Use
  Company Number: None

PATIENT
  Age: 15 Year
  Sex: Male
  Weight: 73.9 kg

DRUGS (7)
  1. CYTARABINE [Suspect]
     Active Substance: CYTARABINE
     Indication: Acute myeloid leukaemia
     Dosage: 2 COURSES
     Route: 042
     Dates: start: 20220923, end: 20221024
  2. CYTARABINE [Suspect]
     Active Substance: CYTARABINE
     Dosage: 1 DF
     Route: 042
     Dates: start: 20230715, end: 20230715
  3. MYLOTARG [Suspect]
     Active Substance: GEMTUZUMAB OZOGAMICIN
     Indication: Acute myeloid leukaemia
     Dosage: 4 COURSES
     Route: 042
     Dates: start: 20220603, end: 20221024
  4. MYLOTARG [Suspect]
     Active Substance: GEMTUZUMAB OZOGAMICIN
     Dosage: 1 DF
     Route: 042
     Dates: start: 20230715, end: 20230715
  5. VENETOCLAX [Suspect]
     Active Substance: VENETOCLAX
     Indication: Acute myeloid leukaemia
     Dosage: 1 DF, 1X/DAY
     Dates: start: 20230715, end: 2023
  6. BLINCYTO [Suspect]
     Active Substance: BLINATUMOMAB
     Indication: Acute myeloid leukaemia
     Dosage: 2 COURSES
     Route: 042
     Dates: start: 20230417, end: 202306
  7. FLUDARABINE PHOSPHATE [Suspect]
     Active Substance: FLUDARABINE PHOSPHATE
     Indication: Acute myeloid leukaemia
     Dosage: 1 DF
     Route: 042
     Dates: start: 20230715, end: 20230715

REACTIONS (1)
  - Ketosis-prone diabetes mellitus [Recovered/Resolved with Sequelae]

NARRATIVE: CASE EVENT DATE: 20230903
